FAERS Safety Report 6078892-2 (Version None)
Quarter: 2009Q1

REPORT INFORMATION
  Report Type: 
  Country: None (occurrence: None)
  Receive Date: 20090216
  Receipt Date: 20090116
  Transmission Date: 20090719
  Serious: No
  Sender: FDA-Public Use
  Company Number: US-BAYER-200840239NA

PATIENT
  Age: 20 Year
  Sex: Female
  Weight: 53 kg

DRUGS (1)
  1. YAZ [Suspect]
     Indication: CONTRACEPTION
     Route: 048
     Dates: start: 20080630, end: 20081121

REACTIONS (4)
  - CRYING [None]
  - DRUG WITHDRAWAL HEADACHE [None]
  - MOOD ALTERED [None]
  - PALPITATIONS [None]
